FAERS Safety Report 17670441 (Version 1)
Quarter: 2020Q2

REPORT INFORMATION
  Report Type: Spontaneous
  Country: DE (occurrence: DE)
  Receive Date: 20200415
  Receipt Date: 20200415
  Transmission Date: 20200713
  Serious: Yes (Hospitalization, Other)
  Sender: FDA-Public Use
  Company Number: DE-TEVA-2020-DE-1223381

PATIENT
  Age: 66 Year
  Sex: Female

DRUGS (15)
  1. LEVEMIR [Concomitant]
     Active Substance: INSULIN DETEMIR
     Dosage: 14 IU (INTERNATIONAL UNIT) DAILY;  0-0-0-14
  2. METAMIZOL [Concomitant]
     Active Substance: METAMIZOLE SODIUM
     Dosage: 500 MG, 2-2-2-2
  3. PANTOPRAZOL [Concomitant]
     Active Substance: PANTOPRAZOLE SODIUM
     Dosage: 40 MILLIGRAM DAILY; 1-0-0-0
  4. SITAGLIPTIN [Concomitant]
     Active Substance: SITAGLIPTIN
     Dosage: 100 MG, 1-0-0-0
  5. MELPERON [Concomitant]
     Active Substance: MELPERONE
     Dosage: 25 MG, 1X IF NECESSARY
  6. MACROGOL [Concomitant]
     Active Substance: POLYETHYLENE GLYCOLS
     Dosage: 1 DOSAGE FORMS DAILY; NK MG, 1-0-0-0
  7. NALOXONE W/OXYCODONE [Concomitant]
     Active Substance: NALOXONE HYDROCHLORIDE\OXYCODONE HYDROCHLORIDE
     Dosage: 10|20 MG, 1-1-1-0
  8. PREDNISOLON [Suspect]
     Active Substance: PREDNISOLONE
     Dosage: 1-0-0-0
     Route: 065
  9. PREGABALIN. [Concomitant]
     Active Substance: PREGABALIN
     Dosage: 25 MG, 1-0-2-0
  10. AMLODIPINE BESILATE [Concomitant]
     Active Substance: AMLODIPINE BESYLATE
     Dosage: 0.5MG, 0.5-0-0.5-0
  11. DIMETICON [Concomitant]
     Dosage: 5 ML, 1-1-1-0
  12. PANKREATIN (SCHWEIN) [Concomitant]
     Dosage: 25.000 IE, 1-1-1-0
  13. FENTANYL. [Concomitant]
     Active Substance: FENTANYL
     Dosage: 0.1 MG, 1X IF NECESSARY
  14. FOLFIRINOX [Suspect]
     Active Substance: FLUOROURACIL\IRINOTECAN\LEUCOVORIN\OXALIPLATIN
     Dosage: NK MG, LAST 11112019
  15. METFORMIN [Concomitant]
     Active Substance: METFORMIN HYDROCHLORIDE
     Dosage: 500 MG, 1-0-1-0

REACTIONS (3)
  - Ascites [Unknown]
  - Adverse reaction [Unknown]
  - Systemic infection [Unknown]
